FAERS Safety Report 8586504 (Version 14)
Quarter: 2016Q4

REPORT INFORMATION
  Report Type: Spontaneous
  Country: US (occurrence: US)
  Receive Date: 20120530
  Receipt Date: 20161028
  Transmission Date: 20170207
  Serious: Yes (Hospitalization, Other)
  Sender: FDA-Public Use
  Company Number: US-GLAXOSMITHKLINE-A0979214A

PATIENT
  Age: 78 Year
  Sex: Female

DRUGS (17)
  1. FLOLAN [Suspect]
     Active Substance: EPOPROSTENOL SODIUM
     Dosage: 36 NG/KG/MIN,CO
     Route: 042
  2. FLOLAN [Suspect]
     Active Substance: EPOPROSTENOL SODIUM
     Dosage: UNK, CO
     Dates: start: 20070806
  3. FLOLAN [Suspect]
     Active Substance: EPOPROSTENOL SODIUM
     Dosage: 29.6 NG/KG/MIN, CO
     Route: 042
  4. FLOLAN [Suspect]
     Active Substance: EPOPROSTENOL SODIUM
     Dosage: 22 DF, CO
     Dates: start: 20070806
  5. FLOLAN [Suspect]
     Active Substance: EPOPROSTENOL SODIUM
     Indication: PULMONARY ARTERIAL HYPERTENSION
     Dosage: 29.6 NG/KG/MIN
     Route: 042
     Dates: start: 20070615
  6. FLOLAN [Suspect]
     Active Substance: EPOPROSTENOL SODIUM
     Dosage: UNK
     Dates: start: 20070615
  7. FLOLAN [Suspect]
     Active Substance: EPOPROSTENOL SODIUM
     Dosage: UNK
     Dates: start: 20070615
  8. REVATIO [Concomitant]
     Active Substance: SILDENAFIL CITRATE
  9. LETAIRIS [Concomitant]
     Active Substance: AMBRISENTAN
  10. FLOLAN [Suspect]
     Active Substance: EPOPROSTENOL SODIUM
     Dosage: 36 NG/KG/MIN,CO
     Route: 042
     Dates: start: 20070806
  11. FLOLAN [Suspect]
     Active Substance: EPOPROSTENOL SODIUM
     Dosage: 30 DF, CO
  12. FLOLAN [Suspect]
     Active Substance: EPOPROSTENOL SODIUM
     Indication: PULMONARY ARTERIAL HYPERTENSION
     Dosage: UNK, U
  13. WARFARIN [Suspect]
     Active Substance: WARFARIN
     Indication: PRODUCT USED FOR UNKNOWN INDICATION
     Dosage: UNK, U
     Route: 065
  14. DIGOXIN. [Concomitant]
     Active Substance: DIGOXIN
  15. SPIRONOLACTONE. [Concomitant]
     Active Substance: SPIRONOLACTONE
  16. ADCIRCA [Concomitant]
     Active Substance: TADALAFIL
  17. FLOLAN [Suspect]
     Active Substance: EPOPROSTENOL SODIUM
     Dosage: 36 NG/KG/MIN, CO
     Route: 042
     Dates: start: 20070806

REACTIONS (21)
  - Melanocytic naevus [Not Recovered/Not Resolved]
  - Feeling abnormal [Unknown]
  - Device alarm issue [Recovered/Resolved]
  - Transfusion [Unknown]
  - Eye infection [Unknown]
  - Thrombosis [Unknown]
  - Bone pain [Unknown]
  - Diarrhoea [Unknown]
  - Anxiety [Unknown]
  - Incorrect dose administered [Recovered/Resolved]
  - Drug dose omission [Recovered/Resolved]
  - Device use error [Recovered/Resolved]
  - Fatigue [Recovered/Resolved]
  - Device infusion issue [Recovered/Resolved]
  - Anaemia [Unknown]
  - Fluid retention [Unknown]
  - Hospitalisation [Recovered/Resolved]
  - Hernia [Unknown]
  - Somnolence [Recovered/Resolved]
  - Cataract operation [Unknown]
  - Haemoglobin decreased [Unknown]

NARRATIVE: CASE EVENT DATE: 2012
